FAERS Safety Report 9521310 (Version 1)
Quarter: 2013Q1

REPORT INFORMATION
  Report Type: Spontaneous
  Country: US (occurrence: None)
  Receive Date: 20130305
  Receipt Date: 20130305
  Transmission Date: 20140127
  Serious: Yes (Other)
  Sender: FDA-Public Use
  Company Number: 163-21880-12072065

PATIENT
  Age: 85 Year
  Sex: Female
  Weight: 71.22 kg

DRUGS (8)
  1. REVLIMID [Suspect]
     Indication: PLASMA CELL MYELOMA
     Dosage: ALTERNATE WITH 10MG
     Route: 048
     Dates: start: 20100127
  2. DCEADRON (DEXAMETHASONE) (UNKNOWN) [Concomitant]
  3. COQ10 (UBIDECARENONE) (UNKNOWN) [Concomitant]
  4. VITAMIN D (ERGOCALCIFEROL) (UNKNOWN) [Concomitant]
  5. FISH OIL (FISH OIL) (UNKNOWN) [Concomitant]
  6. MULTIVITAMINS (MULTIVITAMINS) (UNKNOWN) [Concomitant]
  7. VITAMIN B12 (CYANOCOBALAMIN) (UNKNOWN) [Concomitant]
  8. EPOGEN (EPOETIN ALPHA) (UNKNOWN) [Concomitant]

REACTIONS (2)
  - Red blood cell count decreased [None]
  - Diarrhoea [None]
